FAERS Safety Report 7130845-9 (Version None)
Quarter: 2010Q4

REPORT INFORMATION
  Report Type: 
  Country: None (occurrence: None)
  Receive Date: 20101101
  Receipt Date: 20100927
  Transmission Date: 20110411
  Serious: No
  Sender: FDA-Public Use
  Company Number: 2010-12957

PATIENT
  Age: 68 Year
  Sex: Male
  Weight: 77.1 kg

DRUGS (2)
  1. RAPAFLO [Suspect]
     Indication: POLLAKIURIA
     Dosage: 8 MG, DAILY, ORAL, 8 MG, DAILY, ORAL
     Route: 048
     Dates: start: 20100601, end: 20100913
  2. RAPAFLO [Suspect]
     Indication: POLLAKIURIA
     Dosage: 8 MG, DAILY, ORAL, 8 MG, DAILY, ORAL
     Route: 048
     Dates: start: 20100920

REACTIONS (1)
  - RETROGRADE EJACULATION [None]
